FAERS Safety Report 10956366 (Version 1)
Quarter: 2015Q1

REPORT INFORMATION
  Report Type: Spontaneous
  Country: DE (occurrence: DE)
  Receive Date: 20150326
  Receipt Date: 20150326
  Transmission Date: 20150721
  Serious: Yes (Other)
  Sender: FDA-Public Use
  Company Number: DE-EISAI MEDICAL RESEARCH-EC-2015-004761

PATIENT
  Age: 78 Year
  Sex: Female

DRUGS (15)
  1. ZONEGRAN [Suspect]
     Active Substance: ZONISAMIDE
     Indication: EPILEPSY
     Route: 050
     Dates: start: 20150114, end: 201502
  2. LEVETIRACETAM. [Concomitant]
     Active Substance: LEVETIRACETAM
     Indication: EPILEPSY
     Route: 050
     Dates: start: 20150114
  3. ACETYLSALICYLIC ACID [Concomitant]
     Active Substance: ASPIRIN
     Indication: CORONARY ARTERY DISEASE
     Route: 050
     Dates: start: 20150114, end: 20150226
  4. TOREM [Concomitant]
     Active Substance: TORSEMIDE
     Indication: CARDIAC FAILURE
     Route: 050
     Dates: start: 20150114, end: 20150212
  5. ZONEGRAN [Interacting]
     Active Substance: ZONISAMIDE
     Dates: start: 201502
  6. PHENYTOIN. [Interacting]
     Active Substance: PHENYTOIN
     Route: 050
     Dates: start: 201502
  7. CLEXANE [Concomitant]
     Active Substance: ENOXAPARIN SODIUM
     Route: 050
     Dates: start: 20150224
  8. PERENTEROL [Concomitant]
     Active Substance: SACCHAROMYCES CEREVISIAE
     Indication: DIARRHOEA
     Route: 050
     Dates: start: 20150114
  9. NEXIUM [Concomitant]
     Active Substance: ESOMEPRAZOLE MAGNESIUM
     Indication: PRODUCT USED FOR UNKNOWN INDICATION
     Route: 050
     Dates: start: 20140114
  10. DIGITOXIN [Concomitant]
     Active Substance: DIGITOXIN
     Indication: CORONARY ARTERY DISEASE
     Route: 050
     Dates: start: 20150114
  11. METOHEXAL [Concomitant]
     Active Substance: METOPROLOL SUCCINATE
     Indication: HYPERTENSION
     Route: 050
     Dates: start: 20150114
  12. CLEXANE [Concomitant]
     Active Substance: ENOXAPARIN SODIUM
     Route: 050
     Dates: end: 20150223
  13. HYDROCHLOROTHIAZIDE. [Concomitant]
     Active Substance: HYDROCHLOROTHIAZIDE
     Indication: HYPERTENSION
     Route: 050
     Dates: start: 20150114
  14. CALCIUM [Concomitant]
     Active Substance: CALCIUM
     Indication: PRODUCT USED FOR UNKNOWN INDICATION
     Route: 050
     Dates: start: 20150114
  15. PHENYTOIN. [Interacting]
     Active Substance: PHENYTOIN
     Indication: EPILEPSY
     Route: 050
     Dates: start: 20150114, end: 201502

REACTIONS (3)
  - Drug interaction [Recovered/Resolved]
  - Anticonvulsant drug level decreased [Recovered/Resolved]
  - Leukopenia [Recovered/Resolved]

NARRATIVE: CASE EVENT DATE: 201502
